FAERS Safety Report 5968183-X (Version None)
Quarter: 2008Q4

REPORT INFORMATION
  Report Type: 
  Country: None (occurrence: None)
  Receive Date: 20081122
  Receipt Date: 20081122
  Transmission Date: 20090506
  Serious: Yes (Hospitalization)
  Sender: FDA-Public Use
  Company Number: None

PATIENT
  Sex: Male
  Weight: 96.44 kg

DRUGS (3)
  1. LEUPROLIDE ACETATE [Suspect]
     Dosage: 172.5 MG
  2. CASODEX [Suspect]
     Dosage: 5600 MG
  3. MEGACE [Concomitant]

REACTIONS (2)
  - MYOCARDIAL INFARCTION [None]
  - VENTRICULAR HYPOKINESIA [None]
